FAERS Safety Report 16270565 (Version 2)
Quarter: 2019Q2

REPORT INFORMATION
  Report Type: Spontaneous
  Country: MY (occurrence: MY)
  Receive Date: 20190503
  Receipt Date: 20190513
  Transmission Date: 20190711
  Serious: Yes (Other)
  Sender: FDA-Public Use
  Company Number: MY-PFIZER INC-2019185474

PATIENT
  Age: 68 Year
  Sex: Female

DRUGS (1)
  1. GABAPENTIN. [Suspect]
     Active Substance: GABAPENTIN
     Indication: NEURALGIA
     Dosage: 600 MG, 3X/DAY

REACTIONS (4)
  - Frustration tolerance decreased [Unknown]
  - Depression [Unknown]
  - Somnolence [Unknown]
  - Dizziness [Unknown]
